FAERS Safety Report 18172704 (Version 1)
Quarter: 2020Q3

REPORT INFORMATION
  Report Type: Spontaneous
  Country: US (occurrence: US)
  Receive Date: 20200819
  Receipt Date: 20200819
  Transmission Date: 20201103
  Serious: Yes (Hospitalization, Disabling, Other)
  Sender: FDA-Public Use
  Company Number: US-PURDUE-USA-2020-0161554

PATIENT
  Age: 20 Year
  Sex: Male

DRUGS (2)
  1. OXYCONTIN [Suspect]
     Active Substance: OXYCODONE HYDROCHLORIDE
     Indication: ANALGESIC THERAPY
     Dosage: UNK
     Route: 048
  2. PEPCID [Concomitant]
     Active Substance: FAMOTIDINE
     Indication: PRODUCT USED FOR UNKNOWN INDICATION
     Dosage: UNK
     Route: 065

REACTIONS (17)
  - Aphasia [Unknown]
  - Depression [Unknown]
  - Movement disorder [Unknown]
  - Pneumonia aspiration [Unknown]
  - Tachycardia [Unknown]
  - Somnolence [Unknown]
  - Drug dependence [Not Recovered/Not Resolved]
  - Respiratory failure [Unknown]
  - Depressed level of consciousness [Unknown]
  - Emotional distress [Unknown]
  - Lung abscess [Unknown]
  - Pulmonary haematoma [Unknown]
  - Imprisonment [Unknown]
  - Purulent discharge [Unknown]
  - Overdose [Unknown]
  - Staphylococcal infection [Unknown]
  - Gait disturbance [Unknown]

NARRATIVE: CASE EVENT DATE: 2000
